FAERS Safety Report 6220318-X (Version None)
Quarter: 2009Q2

REPORT INFORMATION
  Report Type: 
  Country: None (occurrence: None)
  Receive Date: 20090528
  Receipt Date: 20090522
  Transmission Date: 20091009
  Serious: Yes (Other)
  Sender: FDA-Public Use
  Company Number: 2009020136

PATIENT
  Sex: Male
  Weight: 87.5442 kg

DRUGS (21)
  1. IMMUNE GLOBULIN INTRAVENOUS (HUMAN) [Suspect]
     Indication: CHRONIC LYMPHOCYTIC LEUKAEMIA
     Dosage: 36 G EVERY 1-2 MONTHS; INTRAVENOUS (NOT OTHERWISE SPECIFIED));
     Route: 042
     Dates: start: 20070101
  2. IMMUNE GLOBULIN INTRAVENOUS (HUMAN) [Suspect]
  3. IMMUNE GLOBULIN INTRAVENOUS (HUMAN) [Suspect]
  4. IMMUNE GLOBULIN INTRAVENOUS (HUMAN) [Suspect]
  5. IMMUNE GLOBULIN INTRAVENOUS (HUMAN) [Suspect]
  6. IMMUNE GLOBULIN INTRAVENOUS (HUMAN) [Suspect]
  7. IMMUNE GLOBULIN INTRAVENOUS (HUMAN) [Suspect]
  8. ALLEGRA [Concomitant]
  9. IBUPROFEN [Concomitant]
  10. MULTIVITAMIN (DAILY MULTIVITAMIN) [Concomitant]
  11. CIPRO [Concomitant]
  12. CITALOPRAM HYDROBROMIDE [Concomitant]
  13. FOLIC ACID [Concomitant]
  14. BETA CAROTENE (BETACAROTENE) [Concomitant]
  15. ASCORBIC ACID [Concomitant]
  16. VITAMIN D [Concomitant]
  17. VITAMINE E (TOCOPHEROL) [Concomitant]
  18. PROBIOTICS ANTIBIOTICS (ANTIBIOTICS) [Concomitant]
  19. COLOSTRUM (COLOSTRUM) [Concomitant]
  20. GREEN TEA EXTRACT (CAMELLIA SINENSIS) [Concomitant]
  21. ECHINACEA TEA (ECHINACEA PURPUREA) [Concomitant]

REACTIONS (3)
  - HEPATITIS B [None]
  - TRANSFUSION-TRANSMITTED INFECTIOUS DISEASE [None]
  - VIRAL INFECTION [None]
